FAERS Safety Report 6906533-8 (Version None)
Quarter: 2010Q3

REPORT INFORMATION
  Report Type: 
  Country: None (occurrence: None)
  Receive Date: 20100804
  Receipt Date: 20100721
  Transmission Date: 20110219
  Serious: No
  Sender: FDA-Public Use
  Company Number: US-B.I. PHARMACEUTICALS,INC./RIDGEFIELD-2010-BP-08251BP

PATIENT
  Sex: Male

DRUGS (10)
  1. ATROVENT HFA [Suspect]
     Indication: CHRONIC OBSTRUCTIVE PULMONARY DISEASE
     Route: 055
     Dates: start: 20100614, end: 20100616
  2. PROAIR HFA [Suspect]
     Indication: CHRONIC OBSTRUCTIVE PULMONARY DISEASE
  3. ALBUTEROL [Concomitant]
     Indication: CHRONIC OBSTRUCTIVE PULMONARY DISEASE
  4. LOVAZA [Concomitant]
  5. METOPROLOL [Concomitant]
  6. ISOSORBIDE [Concomitant]
     Indication: CARDIAC DISORDER
  7. ASPIRIN [Concomitant]
     Indication: PROPHYLAXIS
  8. LISINOPRIL [Concomitant]
     Indication: HYPERTENSION
  9. VYTORIN [Concomitant]
     Indication: BLOOD CHOLESTEROL INCREASED
  10. PLAVIX [Concomitant]
     Indication: CARDIAC DISORDER

REACTIONS (1)
  - DRUG INEFFECTIVE [None]
